FAERS Safety Report 15553868 (Version 1)
Quarter: 2018Q4

REPORT INFORMATION
  Report Type: Spontaneous
  Country: US (occurrence: US)
  Receive Date: 20181026
  Receipt Date: 20181026
  Transmission Date: 20190205
  Serious: No
  Sender: FDA-Public Use
  Company Number: US-ASTRAZENECA-2018SF27521

PATIENT
  Age: 64 Year
  Sex: Male
  Weight: 113.4 kg

DRUGS (10)
  1. BYDUREON BCISE [Suspect]
     Active Substance: EXENATIDE
     Indication: DECREASED APPETITE
     Route: 058
     Dates: start: 2017, end: 201802
  2. LOSARTAN-HCTZ [Concomitant]
     Active Substance: HYDROCHLOROTHIAZIDE\LOSARTAN
     Indication: HYPERTENSION
     Dosage: DAILY
     Route: 048
     Dates: start: 200606
  3. SIMVASTATIN. [Concomitant]
     Active Substance: SIMVASTATIN
     Indication: BLOOD CHOLESTEROL
     Route: 048
     Dates: start: 200606
  4. BYDUREON BCISE [Suspect]
     Active Substance: EXENATIDE
     Indication: PROPHYLAXIS
     Route: 058
     Dates: start: 2017, end: 201802
  5. ASPIRIN. [Concomitant]
     Active Substance: ASPIRIN
     Indication: HYPERTENSION
     Dosage: 81 MG OR 85 MG DAILY
     Route: 048
     Dates: start: 200606
  6. BYDUREON BCISE [Suspect]
     Active Substance: EXENATIDE
     Indication: PROPHYLAXIS
     Route: 058
     Dates: start: 2018
  7. HUMULIN NOS [Concomitant]
     Active Substance: INSULIN HUMAN
     Indication: TYPE 2 DIABETES MELLITUS
     Route: 058
  8. BYDUREON BCISE [Suspect]
     Active Substance: EXENATIDE
     Indication: DECREASED APPETITE
     Route: 058
     Dates: start: 2018
  9. METFORMIN [Concomitant]
     Active Substance: METFORMIN HYDROCHLORIDE
     Indication: TYPE 2 DIABETES MELLITUS
     Route: 048
  10. ASPIRIN. [Concomitant]
     Active Substance: ASPIRIN
     Indication: ANTICOAGULANT THERAPY
     Dosage: 81 MG OR 85 MG DAILY
     Route: 048
     Dates: start: 200606

REACTIONS (3)
  - Wrong technique in device usage process [Unknown]
  - Intentional product misuse [Recovered/Resolved]
  - Injection site haemorrhage [Recovered/Resolved]

NARRATIVE: CASE EVENT DATE: 2017
